FAERS Safety Report 16830169 (Version 1)
Quarter: 2019Q3

REPORT INFORMATION
  Report Type: Report from Study
  Country: None (occurrence: US)
  Receive Date: 20190919
  Receipt Date: 20190919
  Transmission Date: 20191005
  Serious: Yes (Death)
  Sender: FDA-Public Use
  Company Number: US-ABBVIE-19K-163-2931592-00

PATIENT
  Age: 16 Year
  Sex: Male

DRUGS (1)
  1. LUPRON [Suspect]
     Active Substance: LEUPROLIDE ACETATE
     Indication: PERSONALITY DISORDER
     Route: 058
     Dates: end: 201609

REACTIONS (1)
  - Death [Fatal]

NARRATIVE: CASE EVENT DATE: 201609
